FAERS Safety Report 17968626 (Version 1)
Quarter: 2020Q3

REPORT INFORMATION
  Report Type: Spontaneous
  Country: US (occurrence: US)
  Receive Date: 20200701
  Receipt Date: 20200701
  Transmission Date: 20201103
  Serious: No
  Sender: FDA-Public Use
  Company Number: None

PATIENT
  Sex: Female

DRUGS (1)
  1. SILDENAFIL CITRATE 20MG AUROBINDO PHARMA [Suspect]
     Active Substance: SILDENAFIL CITRATE
     Indication: PULMONARY ARTERIAL HYPERTENSION
     Route: 048
     Dates: start: 20200512, end: 202006

REACTIONS (7)
  - Thrombosis [None]
  - Dyspnoea [None]
  - Peripheral swelling [None]
  - Skin disorder [None]
  - Suspected product quality issue [None]
  - Fluid retention [None]
  - Epistaxis [None]
